FAERS Safety Report 18378104 (Version 3)
Quarter: 2020Q4

REPORT INFORMATION
  Report Type: Spontaneous
  Country: ES (occurrence: ES)
  Receive Date: 20201013
  Receipt Date: 20201109
  Transmission Date: 20210114
  Serious: Yes (Hospitalization, Other)
  Sender: FDA-Public Use
  Company Number: ES-MYLANLABS-2020M1085984

PATIENT
  Age: 83 Year
  Sex: Male

DRUGS (10)
  1. OMEPRAZOL                          /00661201/ [Suspect]
     Active Substance: OMEPRAZOLE
     Indication: GASTRIC DISORDER
     Dosage: 20 MILLIGRAM, QD
     Route: 048
  2. OMEPRAZOLE. [Suspect]
     Active Substance: OMEPRAZOLE
     Indication: GASTROINTESTINAL DISORDER
     Dosage: 20 MILLIGRAM, QD
     Route: 048
  3. DIGOXINA [Suspect]
     Active Substance: DIGOXIN
     Indication: CEREBROVASCULAR ACCIDENT
     Dosage: 0.5 MILLIGRAM (EVERY 25 HOURS)
     Route: 048
  4. PRO-ULCO 15 MG C?PSULAS GASTRORRESISTENTES [Suspect]
     Active Substance: LANSOPRAZOLE
     Indication: GASTROINTESTINAL DISORDER
     Dosage: 15 MILLIGRAM, QD
     Route: 048
  5. ATORVASTATINA MYLAN 10 MG COMPRIMIDOS RECUBIERTOS CON PEL?CULA EFG [Suspect]
     Active Substance: ATORVASTATIN CALCIUM
     Indication: URINARY INCONTINENCE
     Dosage: 1 DOSAGE FORM, QD (EVERY 24 HOURS)
     Route: 048
  6. DOLOCATIL [Suspect]
     Active Substance: ACETAMINOPHEN
     Indication: PAIN
     Dosage: 1 GRAM, Q8H
     Route: 048
  7. VALSARTAN MYLAN 160 MG COMPRIMIDOS REVESTIDOS POR PEL?CULA [Suspect]
     Active Substance: VALSARTAN
     Indication: BLOOD PRESSURE ABNORMAL
     Dosage: 160 MILLIGRAM, QD
     Route: 048
  8. ENALAPRIL MALEATE 20 MG TABLETS [Suspect]
     Active Substance: ENALAPRIL MALEATE
     Indication: BLOOD PRESSURE ABNORMAL
     Dosage: 20 MILLIGRAM, QD
     Route: 048
  9. SINTROM [Suspect]
     Active Substance: ACENOCOUMAROL
     Indication: OEDEMA
     Dosage: 16 MILLIGRAM, QW
     Route: 048
  10. DIGOXINA [Suspect]
     Active Substance: DIGOXIN
     Dosage: 0.5 MILLIGRAM, QD
     Route: 048

REACTIONS (5)
  - Atrioventricular block complete [Recovered/Resolved]
  - Fatigue [Recovered/Resolved]
  - Product dosage form issue [Recovered/Resolved]
  - Gastrointestinal disorder [Recovered/Resolved]
  - Cough [Recovered/Resolved]
